FAERS Safety Report 14313121 (Version 1)
Quarter: 2017Q4

REPORT INFORMATION
  Report Type: Spontaneous
  Country: US (occurrence: US)
  Receive Date: 20171221
  Receipt Date: 20171221
  Transmission Date: 20180321
  Serious: Yes (Death)
  Sender: FDA-Public Use
  Company Number: US-PERRIGO-17US030941

PATIENT
  Age: 51 Year
  Sex: Female

DRUGS (5)
  1. HYDROXYZINE [Suspect]
     Active Substance: HYDROXYZINE HYDROCHLORIDE
     Indication: COMPLETED SUICIDE
     Dosage: UNK
     Route: 048
  2. HYDROMORPHONE HYDROCHLORIDE. [Suspect]
     Active Substance: HYDROMORPHONE HYDROCHLORIDE
     Indication: COMPLETED SUICIDE
     Dosage: UNK
     Route: 048
  3. GABAPENTIN. [Suspect]
     Active Substance: GABAPENTIN
     Indication: COMPLETED SUICIDE
     Dosage: UNK
     Route: 048
  4. METHADONE [Suspect]
     Active Substance: METHADONE HYDROCHLORIDE
     Indication: COMPLETED SUICIDE
     Dosage: UNK
     Route: 048
  5. CLONAZEPAM. [Suspect]
     Active Substance: CLONAZEPAM
     Indication: COMPLETED SUICIDE
     Dosage: UNK
     Route: 048

REACTIONS (1)
  - Death [Fatal]
